FAERS Safety Report 13515511 (Version 1)
Quarter: 2017Q2

REPORT INFORMATION
  Report Type: Spontaneous
  Country: JP (occurrence: JP)
  Receive Date: 20170504
  Receipt Date: 20170504
  Transmission Date: 20170830
  Serious: Yes (Other)
  Sender: FDA-Public Use
  Company Number: JP-GILEAD-2017-0258749

PATIENT
  Age: 70 Year
  Sex: Female

DRUGS (12)
  1. PROGRAF [Concomitant]
     Active Substance: TACROLIMUS\TACROLIMUS ANHYDROUS
  2. ATORVASTATIN [Concomitant]
     Active Substance: ATORVASTATIN
  3. PREDNISOLONE                       /00016202/ [Concomitant]
     Active Substance: PREDNISOLONE
  4. ROCALTROL [Concomitant]
     Active Substance: CALCITRIOL
  5. BROTIZOLAM [Concomitant]
     Active Substance: BROTIZOLAM
  6. ACTONEL [Concomitant]
     Active Substance: RISEDRONATE SODIUM
  7. PERINDOPRIL [Concomitant]
     Active Substance: PERINDOPRIL
  8. BREDININ [Concomitant]
     Active Substance: MIZORIBINE
  9. THYRADIN [Concomitant]
     Active Substance: LEVOTHYROXINE
  10. REBAMIPIDE [Concomitant]
     Active Substance: REBAMIPIDE
  11. CELECOX [Concomitant]
     Active Substance: CELECOXIB
  12. HARVONI [Suspect]
     Active Substance: LEDIPASVIR\SOFOSBUVIR
     Indication: CHRONIC HEPATITIS C
     Dosage: 1 DF, QD
     Route: 048
     Dates: start: 20170201

REACTIONS (1)
  - Drug-induced liver injury [Not Recovered/Not Resolved]

NARRATIVE: CASE EVENT DATE: 20170215
